FAERS Safety Report 6454244-8 (Version None)
Quarter: 2009Q4

REPORT INFORMATION
  Report Type: 
  Country: None (occurrence: None)
  Receive Date: 20091124
  Receipt Date: 20091116
  Transmission Date: 20100525
  Serious: Yes (Hospitalization)
  Sender: FDA-Public Use
  Company Number: JP-PFIZER INC-2009299520

PATIENT
  Age: 36 Year
  Sex: Female

DRUGS (4)
  1. PAROXETINE [Suspect]
  2. SERTRALINE HCL [Suspect]
     Route: 048
  3. MILNACIPRAN HYDROCHLORIDE [Suspect]
  4. MAPROTILINE HYDROCHLORIDE [Suspect]
     Dosage: 50 MG/DAY

REACTIONS (1)
  - ACTIVATION SYNDROME [None]
